FAERS Safety Report 4543561-4 (Version None)
Quarter: 2004Q4

REPORT INFORMATION
  Report Type: 
  Country: None (occurrence: None)
  Receive Date: 20041223
  Receipt Date: 20040915
  Transmission Date: 20050328
  Serious: No
  Sender: FDA-Public Use
  Company Number: US-JNJFOC-20040905530

PATIENT
  Age: 31 Year
  Sex: Female
  Weight: 111.1313 kg

DRUGS (11)
  1. ORTHO EVRA [Suspect]
     Dosage: 1 DOSE(S), 3 IN 4 WEEK, TRANSDERMAL
     Route: 062
     Dates: start: 20040912
  2. IMITREX [Concomitant]
  3. ZOCOR [Concomitant]
  4. PROZAC [Concomitant]
  5. PROTONIX [Concomitant]
  6. ADVANDIA (ROSIGLITAZONE MALEATE) [Concomitant]
  7. METFORMIN HCL [Concomitant]
  8. TRAZADONE (TRAZODONE) [Concomitant]
  9. CELEBREX [Concomitant]
  10. NAPROXEN [Concomitant]
  11. CLARITIN [Concomitant]

REACTIONS (1)
  - HEADACHE [None]
